FAERS Safety Report 7318972-4 (Version None)
Quarter: 2011Q1

REPORT INFORMATION
  Report Type: 
  Country: None (occurrence: None)
  Receive Date: 20110216
  Receipt Date: 20110203
  Transmission Date: 20110831
  Serious: Yes (Hospitalization)
  Sender: FDA-Public Use
  Company Number: 026862

PATIENT
  Sex: Female
  Weight: 83 kg

DRUGS (5)
  1. VIMPAT [Suspect]
     Indication: EPILEPSY
     Dosage: (50 MG BID)
     Dates: start: 20101115
  2. LAMOTRIGINE [Concomitant]
  3. L-THYROXINE /00068001/ [Concomitant]
  4. MARCUMAR [Concomitant]
  5. TORASEMID [Concomitant]

REACTIONS (1)
  - INFLUENZA [None]
